FAERS Safety Report 5918213-6 (Version None)
Quarter: 2008Q4

REPORT INFORMATION
  Report Type: 
  Country: None (occurrence: None)
  Receive Date: 20081014
  Receipt Date: 20080929
  Transmission Date: 20090506
  Serious: Yes (Death)
  Sender: FDA-Public Use
  Company Number: JP-GENENTECH-266220

PATIENT
  Sex: Male
  Weight: 53 kg

DRUGS (7)
  1. AVASTIN [Suspect]
     Indication: RECTAL CANCER
     Dosage: 5 MG/KG, Q2W
     Route: 041
     Dates: start: 20071221, end: 20080523
  2. OXALIPLATIN [Suspect]
     Indication: RECTAL CANCER
     Dosage: 130 MG, Q2W
     Route: 041
     Dates: start: 20071221, end: 20080523
  3. FLUOROURACIL [Suspect]
     Indication: RECTAL CANCER
     Dosage: 600 MG, Q2W
     Route: 042
     Dates: start: 20071221, end: 20080523
  4. LEUCOVORIN CALCIUM [Suspect]
     Indication: RECTAL CANCER
     Dosage: 325 MG, Q2W
     Route: 041
     Dates: start: 20071221, end: 20080523
  5. DECADRON [Concomitant]
     Indication: DRUG USE FOR UNKNOWN INDICATION
     Dosage: UNK
     Dates: start: 20071221, end: 20080523
  6. HEPARIN SODIUM [Concomitant]
     Indication: DRUG USE FOR UNKNOWN INDICATION
     Dosage: UNK
     Dates: start: 20071221, end: 20080523
  7. KYTRIL [Concomitant]
     Indication: DRUG USE FOR UNKNOWN INDICATION
     Dosage: UNK
     Dates: start: 20071221, end: 20080523

REACTIONS (2)
  - ACUTE RESPIRATORY DISTRESS SYNDROME [None]
  - SEPSIS [None]
